FAERS Safety Report 4679889-7 (Version None)
Quarter: 2005Q2

REPORT INFORMATION
  Report Type: 
  Country: None (occurrence: None)
  Receive Date: 20050602
  Receipt Date: 20050302
  Transmission Date: 20051028
  Serious: No
  Sender: FDA-Public Use
  Company Number: 8007099

PATIENT
  Age: 53 Year
  Sex: Female

DRUGS (6)
  1. AUGMENTIN [Suspect]
     Indication: SINUSITIS
     Route: 048
     Dates: start: 20040826
  2. LAMOTRIGINE [Suspect]
     Indication: PSYCHOMOTOR SEIZURES
     Route: 048
     Dates: start: 20040101
  3. KEPPRA [Concomitant]
     Dosage: 500MG FOUR TIMES PER DAY
  4. DILANTIN [Concomitant]
  5. EVISTA [Concomitant]
  6. VIACTIV [Concomitant]

REACTIONS (3)
  - GLOSSODYNIA [None]
  - SINUSITIS [None]
  - SWOLLEN TONGUE [None]
